FAERS Safety Report 24716905 (Version 1)
Quarter: 2024Q4

REPORT INFORMATION
  Report Type: Spontaneous
  Country: IN (occurrence: IN)
  Receive Date: 20241210
  Receipt Date: 20241210
  Transmission Date: 20250114
  Serious: Yes (Death, Other)
  Sender: PFIZER
  Company Number: IN-PFIZER INC-PV202400122262

PATIENT
  Age: 58 Year
  Sex: Male

DRUGS (1)
  1. CRIZOTINIB [Suspect]
     Active Substance: CRIZOTINIB
     Indication: Lung adenocarcinoma
     Dosage: 250 MG, 2X/DAY
     Route: 048
     Dates: start: 20240606

REACTIONS (2)
  - Death [Fatal]
  - Dysphagia [Unknown]

NARRATIVE: CASE EVENT DATE: 20240701
